FAERS Safety Report 7740203-1 (Version None)
Quarter: 2011Q3

REPORT INFORMATION
  Report Type: 
  Country: None (occurrence: None)
  Receive Date: 20110909
  Receipt Date: 20110909
  Transmission Date: 20111222
  Serious: Yes (Hospitalization)
  Sender: FDA-Public Use
  Company Number: None

PATIENT
  Age: 82 Year
  Sex: Female
  Weight: 54.431 kg

DRUGS (1)
  1. ATIVAN [Suspect]
     Indication: ANXIETY
     Dosage: GIVEN IN HOSPITAL
     Route: 048
     Dates: start: 20110904, end: 20110905

REACTIONS (5)
  - HOSTILITY [None]
  - AGGRESSION [None]
  - CONFUSIONAL STATE [None]
  - HALLUCINATION [None]
  - INSOMNIA [None]
